FAERS Safety Report 7231793-6 (Version None)
Quarter: 2011Q1

REPORT INFORMATION
  Report Type: 
  Country: None (occurrence: None)
  Receive Date: 20110118
  Receipt Date: 20110111
  Transmission Date: 20110831
  Serious: Yes (Hospitalization)
  Sender: FDA-Public Use
  Company Number: JP-B.I. PHARMACEUTICALS,INC./RIDGEFIELD-2010-BP-11069NB

PATIENT
  Sex: Male
  Weight: 63.8 kg

DRUGS (15)
  1. GASTER D [Concomitant]
     Indication: GASTRITIS
     Dosage: 2DF
     Route: 048
     Dates: start: 20030101
  2. REGPARA [Concomitant]
     Indication: HYPERPARATHYROIDISM SECONDARY
     Dosage: 2DF
     Route: 048
     Dates: start: 20030101
  3. BI-SIFROL TABLETS [Suspect]
     Indication: RESTLESS LEGS SYNDROME
     Dosage: 0.125 MG
     Route: 048
     Dates: start: 20100918, end: 20100921
  4. DIGOXIN [Concomitant]
     Indication: CARDIAC FAILURE
     Dosage: 1DF
     Route: 048
     Dates: start: 20030101
  5. NITRODERM [Concomitant]
     Indication: ANGINA PECTORIS
     Dosage: 1DF
     Route: 062
     Dates: start: 20030101
  6. MUCOSOLVAN [Concomitant]
     Indication: BRONCHITIS CHRONIC
     Dosage: 3DF
     Route: 048
     Dates: start: 20030101
  7. SIGMART [Concomitant]
     Indication: ANGINA PECTORIS
     Dosage: 2DF
     Route: 048
     Dates: start: 20030101
  8. RENAGEL [Concomitant]
     Indication: HYPERLIPIDAEMIA
     Dosage: 24DF
     Route: 048
     Dates: start: 20030101
  9. ASVERIN [Concomitant]
     Indication: BRONCHITIS CHRONIC
     Dosage: 3DF
     Route: 048
     Dates: start: 20030101
  10. FRANDOL [Concomitant]
     Indication: ANGINA PECTORIS
     Dosage: 2DF
     Route: 048
     Dates: start: 20030101
  11. SEDIEL [Concomitant]
     Indication: ANXIETY DISORDER
     Dosage: 1DF
     Route: 048
     Dates: start: 20030101
  12. EPADEL S [Concomitant]
     Indication: HYPERLIPIDAEMIA
     Dosage: 3DF
     Route: 048
     Dates: start: 20030101
  13. HALCION [Concomitant]
     Indication: INSOMNIA
     Dosage: 1DF
     Route: 048
     Dates: start: 20030101
  14. MUCODYNE [Concomitant]
     Indication: BRONCHITIS CHRONIC
     Dosage: 3DF
     Route: 048
     Dates: start: 20030101
  15. TAKEPRON [Concomitant]
     Indication: REFLUX OESOPHAGITIS
     Dosage: 1DF
     Route: 048
     Dates: start: 20030101

REACTIONS (3)
  - HEPATIC FUNCTION ABNORMAL [None]
  - ALTERED STATE OF CONSCIOUSNESS [None]
  - BLOOD CREATINE PHOSPHOKINASE INCREASED [None]
